FAERS Safety Report 10109369 (Version 1)
Quarter: 2014Q2

REPORT INFORMATION
  Report Type: Spontaneous
  Country: US (occurrence: None)
  Receive Date: 20140424
  Receipt Date: 20140424
  Transmission Date: 20141212
  Serious: Yes (Disabling)
  Sender: FDA-Public Use
  Company Number: None

PATIENT
  Age: 36 Year
  Sex: Male
  Weight: 83.92 kg

DRUGS (1)
  1. PROPECIA [Suspect]
     Indication: ALOPECIA
     Dosage: 1 PILL
     Route: 048

REACTIONS (6)
  - Depression [None]
  - Erectile dysfunction [None]
  - Palpitations [None]
  - Insomnia [None]
  - Anxiety [None]
  - Drug effect incomplete [None]
